FAERS Safety Report 17096622 (Version 1)
Quarter: 2019Q4

REPORT INFORMATION
  Report Type: Spontaneous
  Country: GB (occurrence: GB)
  Receive Date: 20191202
  Receipt Date: 20191202
  Transmission Date: 20200122
  Serious: Yes (Disabling)
  Sender: FDA-Public Use
  Company Number: GB-TEVA-2019-GB-1144103

PATIENT
  Age: 75 Year
  Sex: Female
  Weight: 67 kg

DRUGS (3)
  1. IRBESARTAN. [Concomitant]
     Active Substance: IRBESARTAN
     Dosage: 75MG
  2. OMEPRAZOLE. [Concomitant]
     Active Substance: OMEPRAZOLE
     Dosage: 20MG
  3. AMLODIPINE [Suspect]
     Active Substance: AMLODIPINE BESYLATE
     Indication: HYPERTENSION
     Dosage: 5MG
     Route: 048
     Dates: start: 20140401, end: 20191025

REACTIONS (3)
  - Gingival bleeding [Not Recovered/Not Resolved]
  - Gingival pain [Not Recovered/Not Resolved]
  - Gingival disorder [Not Recovered/Not Resolved]

NARRATIVE: CASE EVENT DATE: 20150501
